FAERS Safety Report 10282000 (Version 2)
Quarter: 2014Q3

REPORT INFORMATION
  Report Type: Report from Study
  Country: US (occurrence: US)
  Receive Date: 20140707
  Receipt Date: 20140723
  Transmission Date: 20150326
  Serious: Yes (Hospitalization, Other)
  Sender: FDA-Public Use
  Company Number: US-TEVA-492011USA

PATIENT
  Age: 55 Year
  Sex: Female

DRUGS (1)
  1. COPAXONE [Suspect]
     Active Substance: GLATIRAMER ACETATE
     Indication: MULTIPLE SCLEROSIS
     Dates: start: 20090505

REACTIONS (3)
  - Cardiac arrest [Recovered/Resolved]
  - Multiple sclerosis relapse [Unknown]
  - Convulsion [Unknown]

NARRATIVE: CASE EVENT DATE: 201405
